FAERS Safety Report 9882557 (Version 2)
Quarter: 2014Q1

REPORT INFORMATION
  Report Type: Spontaneous
  Country: US (occurrence: US)
  Receive Date: 20140207
  Receipt Date: 20140312
  Transmission Date: 20141002
  Serious: Yes (Other)
  Sender: FDA-Public Use
  Company Number: PHHY2014US011894

PATIENT
  Age: 42 Year
  Sex: Female

DRUGS (3)
  1. LEVETIRACETAM [Suspect]
  2. LAMOTRIGINE [Suspect]
  3. GABAPENTIN [Concomitant]

REACTIONS (16)
  - Drug reaction with eosinophilia and systemic symptoms [Unknown]
  - Pyrexia [Unknown]
  - Lymphadenopathy [Unknown]
  - Rash [Unknown]
  - Rash papular [Unknown]
  - Rash pruritic [Unknown]
  - Pain [Unknown]
  - Erythema [Unknown]
  - Oedema [Unknown]
  - Rash macular [Unknown]
  - Skin plaque [Unknown]
  - Leukocytosis [Unknown]
  - Hepatitis [Unknown]
  - Eosinophilia [Unknown]
  - Eczema [Unknown]
  - Dermatitis [Unknown]
